FAERS Safety Report 14988548 (Version 2)
Quarter: 2018Q2

REPORT INFORMATION
  Report Type: Spontaneous
  Country: JP (occurrence: JP)
  Receive Date: 20180608
  Receipt Date: 20180613
  Transmission Date: 20180711
  Serious: Yes (Other)
  Sender: FDA-Public Use
  Company Number: JP-PFIZER INC-2018231852

PATIENT
  Age: 19 Year
  Sex: Male

DRUGS (15)
  1. CISPLATIN. [Suspect]
     Active Substance: CISPLATIN
     Indication: METASTASES TO LYMPH NODES
     Dosage: UNK, (THREE CYCLES)
  2. IFEX [Suspect]
     Active Substance: IFOSFAMIDE
     Indication: METASTASES TO LYMPH NODES
  3. ETOPOSIDE. [Suspect]
     Active Substance: ETOPOSIDE
     Indication: METASTASES TO LUNG
     Dosage: UNK, (FOUR CYCLES)
  4. IFEX [Suspect]
     Active Substance: IFOSFAMIDE
     Indication: METASTASES TO LUNG
     Dosage: UNK, (THREE CYCLES)
  5. PACLITAXEL. [Suspect]
     Active Substance: PACLITAXEL
     Indication: METASTASES TO LYMPH NODES
  6. ETOPOSIDE. [Suspect]
     Active Substance: ETOPOSIDE
     Indication: METASTASES TO LYMPH NODES
  7. PACLITAXEL. [Suspect]
     Active Substance: PACLITAXEL
     Indication: METASTASES TO LUNG
  8. CISPLATIN. [Suspect]
     Active Substance: CISPLATIN
     Indication: METASTASES TO LUNG
  9. IFEX [Suspect]
     Active Substance: IFOSFAMIDE
     Indication: TESTICULAR GERM CELL TUMOUR MIXED
  10. CISPLATIN. [Suspect]
     Active Substance: CISPLATIN
     Indication: TESTICULAR GERM CELL TUMOUR MIXED
     Dosage: UNK, (FOUR CYCLES)
  11. ETOPOSIDE. [Suspect]
     Active Substance: ETOPOSIDE
     Indication: TESTICULAR GERM CELL TUMOUR MIXED
  12. BLEOMYCIN [Suspect]
     Active Substance: BLEOMYCIN SULFATE
     Indication: METASTASES TO LYMPH NODES
  13. PACLITAXEL. [Suspect]
     Active Substance: PACLITAXEL
     Indication: TESTICULAR GERM CELL TUMOUR MIXED
     Dosage: UNK, (THREE CYCLES)
  14. BLEOMYCIN [Suspect]
     Active Substance: BLEOMYCIN SULFATE
     Indication: TESTICULAR GERM CELL TUMOUR MIXED
     Dosage: UNK, (FOUR CYCLES)
  15. BLEOMYCIN [Suspect]
     Active Substance: BLEOMYCIN SULFATE
     Indication: METASTASES TO LUNG

REACTIONS (1)
  - Teratoma benign [Recovered/Resolved]
